FAERS Safety Report 18496707 (Version 1)
Quarter: 2020Q4

REPORT INFORMATION
  Report Type: Spontaneous
  Country: US (occurrence: US)
  Receive Date: 20201112
  Receipt Date: 20201112
  Transmission Date: 20210114
  Serious: Yes (Disabling)
  Sender: FDA-Public Use
  Company Number: None

PATIENT
  Age: 62 Year
  Sex: Male
  Weight: 90 kg

DRUGS (11)
  1. TRIAMCINOLONE ACETONIDE. [Concomitant]
     Active Substance: TRIAMCINOLONE ACETONIDE
  2. ASPIRIN 81 MG [Concomitant]
     Active Substance: ASPIRIN
  3. AMLODIPINE [Concomitant]
     Active Substance: AMLODIPINE BESYLATE
  4. ATORVASTATIN  10 MG [Concomitant]
     Active Substance: ATORVASTATIN
  5. CYANOCOBALAMIN-COBAMAMIDE [Concomitant]
  6. VITAMIN C [Concomitant]
     Active Substance: ASCORBIC ACID
  7. TADALAFIL. [Concomitant]
     Active Substance: TADALAFIL
  8. DUTASTERIDE CAP 0.5MG [Suspect]
     Active Substance: DUTASTERIDE
     Indication: BENIGN PROSTATIC HYPERPLASIA
     Dosage: ?          QUANTITY:1 CAPSULE(S);OTHER FREQUENCY:2X WEEKLY;?
     Route: 048
  9. LEVOTHYROXINE 137 MCG [Concomitant]
  10. SPIRONOLACTONE. [Concomitant]
     Active Substance: SPIRONOLACTONE
  11. MAGNESIUM 250 MG [Concomitant]

REACTIONS (3)
  - Hypertrichosis [None]
  - Therapy interrupted [None]
  - Condition aggravated [None]

NARRATIVE: CASE EVENT DATE: 20200901
